FAERS Safety Report 6769816-0 (Version None)
Quarter: 2010Q2

REPORT INFORMATION
  Report Type: 
  Country: None (occurrence: None)
  Receive Date: 20100615
  Receipt Date: 20100518
  Transmission Date: 20101027
  Serious: Yes (Death, Other)
  Sender: FDA-Public Use
  Company Number: PHHY2010JP33347

PATIENT
  Age: 68 Year
  Sex: Female
  Weight: 63 kg

DRUGS (1)
  1. METYRAPONE [Suspect]
     Dosage: 1500 MG, UNK
     Route: 048

REACTIONS (6)
  - ACTH-PRODUCING PITUITARY TUMOUR [None]
  - GENERAL PHYSICAL HEALTH DETERIORATION [None]
  - MALAISE [None]
  - PNEUMONIA STAPHYLOCOCCAL [None]
  - SEPTIC SHOCK [None]
  - STAPHYLOCOCCAL SEPSIS [None]
